FAERS Safety Report 8134245-4 (Version None)
Quarter: 2012Q1

REPORT INFORMATION
  Report Type: 
  Country: None (occurrence: None)
  Receive Date: 20120201
  Receipt Date: 20120116
  Transmission Date: 20120608
  Serious: Yes (Death, Hospitalization)
  Sender: FDA-Public Use
  Company Number: 23610

PATIENT
  Age: 70 Year
  Sex: Female

DRUGS (8)
  1. IPRATROPIUM BROMIDE [Concomitant]
  2. METOPROLOL TARTRATE [Concomitant]
  3. ADVAIR DISKUS 100/50 [Concomitant]
  4. XOPENEX [Concomitant]
  5. GLASSIA [Suspect]
     Indication: ALPHA-1 ANTI-TRYPSIN DEFICIENCY
     Dosage: IV, WEEKLY
     Route: 042
     Dates: start: 20110315
  6. THEOPHYLLINE [Concomitant]
  7. PREDNISONE [Concomitant]
  8. SINGULAIR [Concomitant]

REACTIONS (5)
  - PULMONARY HYPERTENSION [None]
  - PNEUMONIA [None]
  - RESPIRATORY FAILURE [None]
  - CARDIAC FAILURE CONGESTIVE [None]
  - DISEASE PROGRESSION [None]
